FAERS Safety Report 10748692 (Version 2)
Quarter: 2014Q4

REPORT INFORMATION
  Report Type: Spontaneous
  Country: US (occurrence: None)
  Receive Date: 20141202
  Receipt Date: 20141202
  Transmission Date: 20150529
  Serious: No
  Sender: FDA-Public Use
  Company Number: TPA2013A07173

PATIENT
  Age: 51 Year
  Sex: Female
  Weight: 71.8 kg

DRUGS (3)
  1. PROAIR (FLUTICASONE PROPIONATE) [Concomitant]
     Active Substance: FLUTICASONE PROPIONATE
  2. KAZANO [Suspect]
     Active Substance: ALOGLIPTIN BENZOATE\METFORMIN HYDROCHLORIDE
     Indication: TYPE 2 DIABETES MELLITUS
     Route: 048
     Dates: start: 20130620, end: 20130715
  3. CLARITIN (GLICLAZIDE) [Concomitant]
     Active Substance: GLICLAZIDE

REACTIONS (2)
  - Hot flush [None]
  - Insomnia [None]
